FAERS Safety Report 9434641 (Version 1)
Quarter: 2013Q3

REPORT INFORMATION
  Report Type: Spontaneous
  Country: US (occurrence: US)
  Receive Date: 20130801
  Receipt Date: 20130801
  Transmission Date: 20140515
  Serious: No
  Sender: FDA-Public Use
  Company Number: US-PFIZER INC-2013223633

PATIENT
  Age: 61 Year
  Sex: Male
  Weight: 122.45 kg

DRUGS (5)
  1. LYRICA [Suspect]
     Indication: NEURALGIA
     Dosage: 150 MG, 2X/DAY
     Route: 048
     Dates: start: 20130716, end: 201307
  2. LYRICA [Suspect]
     Dosage: 150 MG, 2X/DAY
     Route: 048
     Dates: start: 201307, end: 201307
  3. LOSARTAN [Concomitant]
     Indication: HYPERTENSION
     Dosage: UNK
  4. AMLODIPINE [Concomitant]
     Indication: HYPERTENSION
     Dosage: 5 MG, UNK
  5. AVODART [Concomitant]
     Indication: PROSTATOMEGALY
     Dosage: 0.5 MG, UNK

REACTIONS (5)
  - Off label use [Unknown]
  - Rash [Unknown]
  - Skin discolouration [Unknown]
  - Rash macular [Unknown]
  - Rash pruritic [Unknown]
